FAERS Safety Report 4534880-6 (Version None)
Quarter: 2004Q4

REPORT INFORMATION
  Report Type: 
  Country: None (occurrence: None)
  Receive Date: 20041222
  Receipt Date: 20040607
  Transmission Date: 20050328
  Serious: No
  Sender: FDA-Public Use
  Company Number: US-BRISTOL-MYERS SQUIBB COMPANY-12607727

PATIENT
  Age: 79 Year
  Sex: Female
  Weight: 54 kg

DRUGS (3)
  1. PRAVACHOL [Suspect]
     Indication: BLOOD CHOLESTEROL INCREASED
     Dosage: DOSE INCREASED TO 40MG DAILY 2 MONTHS AGO
     Route: 048
  2. ZETIA [Concomitant]
  3. PREVACID [Concomitant]

REACTIONS (2)
  - ALOPECIA [None]
  - NAIL DISORDER [None]
